FAERS Safety Report 5683330-5 (Version None)
Quarter: 2008Q1

REPORT INFORMATION
  Report Type: 
  Country: None (occurrence: None)
  Receive Date: 20080326
  Receipt Date: 20080312
  Transmission Date: 20080703
  Serious: Yes (Other)
  Sender: FDA-Public Use
  Company Number: 232448J08USA

PATIENT
  Age: 42 Year
  Sex: Female
  Weight: 113.3993 kg

DRUGS (6)
  1. REBIF [Suspect]
     Indication: MULTIPLE SCLEROSIS
     Dosage: 44 MCG, 3 IN 1 WEEKS, SUBCUTANEOUS, 44 MCG, 3 IN 1 WEEKS, SUBCUTANEOUS
     Route: 058
     Dates: start: 20030905, end: 20080101
  2. REBIF [Suspect]
     Indication: MULTIPLE SCLEROSIS
     Dosage: 44 MCG, 3 IN 1 WEEKS, SUBCUTANEOUS, 44 MCG, 3 IN 1 WEEKS, SUBCUTANEOUS
     Route: 058
     Dates: start: 20080317
  3. BACLOFEN [Concomitant]
  4. GLIPIZIDE [Concomitant]
  5. PRIMIDONE [Concomitant]
  6. AMANTADINE HCL [Concomitant]

REACTIONS (5)
  - MUSCLE SPASMS [None]
  - PERIPHERAL COLDNESS [None]
  - RESTLESS LEGS SYNDROME [None]
  - THROMBOSIS [None]
  - TREATMENT NONCOMPLIANCE [None]
